FAERS Safety Report 6985096-5 (Version None)
Quarter: 2010Q3

REPORT INFORMATION
  Report Type: 
  Country: None (occurrence: None)
  Receive Date: 20100915
  Receipt Date: 20100909
  Transmission Date: 20110219
  Serious: Yes (Life-Threatening, Disabling, Other)
  Sender: FDA-Public Use
  Company Number: PHHY2010JP52675

PATIENT
  Sex: Male

DRUGS (17)
  1. DIOVAN [Suspect]
     Indication: HYPERTENSION
     Dosage: 80 MG, QD
     Route: 048
     Dates: start: 20080604, end: 20100201
  2. AMLODIPINE BESYLATE [Concomitant]
     Indication: HYPERTENSION
     Dosage: 2.5 MG, UNK
     Route: 048
     Dates: start: 20080717, end: 20100201
  3. ASPIRIN [Concomitant]
     Dosage: 100 MG, UNK
     Route: 048
     Dates: start: 20080413, end: 20100201
  4. LASIX [Concomitant]
     Dosage: 20 MG, UNK
     Route: 048
     Dates: start: 20080413, end: 20100201
  5. PERSANTIN [Concomitant]
     Dosage: 100 MG, UNK
     Route: 048
     Dates: start: 20080414, end: 20100201
  6. ALLOZYM [Concomitant]
     Dosage: 200 MG, UNK
     Route: 048
     Dates: start: 20080414
  7. ALLOZYM [Concomitant]
     Dosage: 100 MG, UNK
     Route: 048
     Dates: end: 20100201
  8. MAGMITT [Suspect]
     Dosage: 1000 MG, UNK
     Route: 048
     Dates: start: 20080414, end: 20100201
  9. VASOLATOR [Concomitant]
     Dosage: 27 MG, UNK
     Route: 048
     Dates: start: 20080414, end: 20100201
  10. ITOROL [Concomitant]
     Dosage: 40 MG, UNK
     Route: 048
     Dates: start: 20090917, end: 20100201
  11. PARIET [Concomitant]
     Dosage: 10 MG, UNK
     Route: 048
     Dates: start: 20090907, end: 20100201
  12. FEROTYM [Concomitant]
     Dosage: 100 MG, UNK
     Route: 048
     Dates: start: 20090909, end: 20090916
  13. MS CONTIN [Concomitant]
     Dosage: 10 MG, UNK
     Route: 048
     Dates: start: 20090909, end: 20100201
  14. TRIAZOLAM [Concomitant]
     Dosage: 0.12 MG, UNK
     Route: 048
     Dates: start: 20091105, end: 20100201
  15. TETIPLINE [Concomitant]
     Dosage: 80 MG, UNK
     Route: 042
     Dates: start: 20091014, end: 20100201
  16. ENSURE [Concomitant]
     Dosage: 250 ML, UNK
     Route: 048
     Dates: start: 20091203, end: 20091217
  17. LEUPLIN [Concomitant]

REACTIONS (6)
  - BLOOD PRESSURE DIASTOLIC DECREASED [None]
  - CANCER PAIN [None]
  - HYPOPHAGIA [None]
  - IRON DEFICIENCY ANAEMIA [None]
  - METASTASES TO LUNG [None]
  - PROSTATE CANCER [None]
